FAERS Safety Report 17921174 (Version 3)
Quarter: 2020Q3

REPORT INFORMATION
  Report Type: Report from Study
  Country: SA (occurrence: SA)
  Receive Date: 20200622
  Receipt Date: 20200714
  Transmission Date: 20201103
  Serious: Yes (Hospitalization)
  Sender: FDA-Public Use
  Company Number: SA-CELLTRION INC.-2020SA017706

PATIENT

DRUGS (19)
  1. REMSIMA [Suspect]
     Active Substance: INFLIXIMAB
     Indication: CROHN^S DISEASE
     Dosage: 332.5 MG (5 MG/KG EVERY 0, 2, 6, 8 WEEKS (WEIGHT: 55 KG))
     Route: 042
     Dates: start: 20181110
  2. REMSIMA [Suspect]
     Active Substance: INFLIXIMAB
     Dosage: 300 MG (5MG/KG)
  3. METRONIDAZOLE. [Concomitant]
     Active Substance: METRONIDAZOLE
     Indication: ANTIBIOTIC THERAPY
  4. REMSIMA [Suspect]
     Active Substance: INFLIXIMAB
     Dosage: 322.5 MG (5 MG/KG EVERY 0, 2, 6, 8 WEEKS (WEIGHT: 64.5 KG))
     Route: 042
     Dates: start: 20190115
  5. PREDNISOLONE. [Concomitant]
     Active Substance: PREDNISOLONE
     Indication: ANTIINFLAMMATORY THERAPY
  6. PREDNISOLONE. [Concomitant]
     Active Substance: PREDNISOLONE
     Indication: INFLAMMATORY BOWEL DISEASE
     Dosage: 20 MG,1 IN 24 HR/Q24H
     Route: 048
     Dates: start: 20191125, end: 20191227
  7. HYDROCORTISONE SODIUM SUCCINATE [Concomitant]
     Active Substance: HYDROCORTISONE SODIUM SUCCINATE
     Dosage: 100 MG
     Route: 042
     Dates: start: 20190519, end: 20190519
  8. HYDROCORTISONE SODIUM SUCCINATE [Concomitant]
     Active Substance: HYDROCORTISONE SODIUM SUCCINATE
     Dosage: 100 MG
     Route: 042
     Dates: start: 20200101, end: 20200101
  9. REMSIMA [Suspect]
     Active Substance: INFLIXIMAB
     Dosage: 308.5 MG (5 MG/KG  EVERY 0, 2, 6, 8 WEEKS (WEIGHT: 61.7 KG))
     Route: 042
     Dates: start: 20200101, end: 20200101
  10. REMSIMA [Suspect]
     Active Substance: INFLIXIMAB
     Dosage: 322.5 MG (5 MG/KG  EVERY 0, 2, 6, 8 WEEKS (WEIGHT: 64.5 KG))
     Route: 042
     Dates: start: 20190911
  11. HYDROCORTISONE SODIUM SUCCINATE [Concomitant]
     Active Substance: HYDROCORTISONE SODIUM SUCCINATE
     Dosage: 100 MG
     Route: 042
     Dates: start: 20190911, end: 20190911
  12. METHYLPREDNISOLONE SODIUM SUCCINATE. [Concomitant]
     Active Substance: METHYLPREDNISOLONE SODIUM SUCCINATE
     Dosage: UNK
     Route: 030
     Dates: start: 20191226
  13. REMSIMA [Suspect]
     Active Substance: INFLIXIMAB
     Dosage: 322.5 (5 MG/KG  EVERY 0, 2, 6, 8 WEEKS (WEIGHT: 64.5 KG))
     Route: 042
     Dates: start: 20190519, end: 20190519
  14. HYDROCORTISONE SODIUM SUCCINATE [Concomitant]
     Active Substance: HYDROCORTISONE SODIUM SUCCINATE
     Indication: PREMEDICATION
     Dosage: 100 MG
     Route: 042
     Dates: start: 20181204, end: 20181204
  15. METRONIDAZOLE. [Concomitant]
     Active Substance: METRONIDAZOLE
     Indication: ANTIBIOTIC PROPHYLAXIS
     Dosage: 500 MG, STAT
     Route: 042
     Dates: start: 20200107, end: 20200107
  16. REMSIMA [Suspect]
     Active Substance: INFLIXIMAB
     Dosage: 322.5 MG (5 MG/KG EVERY 0, 2, 6, 8 WEEKS (WEIGHT: 64.5 KG (MOST ACCUARTE)/65.9 KG))
     Route: 042
     Dates: start: 20190213
  17. REMSIMA [Suspect]
     Active Substance: INFLIXIMAB
     Dosage: 296.5 MG (5 MG/KG EVERY 0, 2, 6, 8 WEEKS (WEIGHT: 59.3 KG))
     Route: 042
     Dates: start: 20181204
  18. HYDROCORTISONE SODIUM SUCCINATE [Concomitant]
     Active Substance: HYDROCORTISONE SODIUM SUCCINATE
     Dosage: 100 MG
     Route: 042
     Dates: start: 20190115, end: 20190115
  19. HYDROCORTISONE SODIUM SUCCINATE [Concomitant]
     Active Substance: HYDROCORTISONE SODIUM SUCCINATE
     Dosage: 100 MG
     Route: 042
     Dates: start: 20190213, end: 20190213

REACTIONS (4)
  - Abdominal tenderness [Recovered/Resolved]
  - Abdominal pain [Recovered/Resolved]
  - Product use issue [Unknown]
  - Therapy non-responder [Unknown]

NARRATIVE: CASE EVENT DATE: 20200106
